FAERS Safety Report 12183007 (Version 4)
Quarter: 2016Q1

REPORT INFORMATION
  Report Type: Spontaneous
  Country: US (occurrence: US)
  Receive Date: 20160316
  Receipt Date: 20160330
  Transmission Date: 20160526
  Serious: Yes (Other)
  Sender: FDA-Public Use
  Company Number: US-DRREDDYS-USA/USA/16/0077898

PATIENT
  Age: 22 Year
  Sex: Female

DRUGS (1)
  1. ZENATANE [Suspect]
     Active Substance: ISOTRETINOIN
     Indication: ACNE
     Route: 065
     Dates: start: 20160119

REACTIONS (6)
  - Apathy [Unknown]
  - Crying [Unknown]
  - Unevaluable event [Unknown]
  - Alopecia [Unknown]
  - Depressed mood [Unknown]
  - Myalgia [Unknown]

NARRATIVE: CASE EVENT DATE: 20160318
